FAERS Safety Report 7024309-0 (Version None)
Quarter: 2010Q4

REPORT INFORMATION
  Report Type: 
  Country: None (occurrence: None)
  Receive Date: 20101001
  Receipt Date: 20100922
  Transmission Date: 20110411
  Serious: Yes (Other)
  Sender: FDA-Public Use
  Company Number: BR-PFIZER INC-2010121057

PATIENT
  Age: 58 Year
  Sex: Male

DRUGS (1)
  1. LIPITOR [Suspect]
     Indication: CORONARY ARTERY DISEASE
     Dosage: UNK
     Route: 048
     Dates: start: 20090301

REACTIONS (6)
  - ARTERIOSCLEROSIS [None]
  - CORONARY ARTERY BYPASS [None]
  - INSULIN-REQUIRING TYPE 2 DIABETES MELLITUS [None]
  - LIPID METABOLISM DISORDER [None]
  - MYOCARDIAL INFARCTION [None]
  - SURGERY [None]
